FAERS Safety Report 8462353 (Version 7)
Quarter: 2014Q1

REPORT INFORMATION
  Report Type: Spontaneous
  Country: US (occurrence: US)
  Receive Date: 20120316
  Receipt Date: 20140225
  Transmission Date: 20141002
  Serious: Yes (Hospitalization, Other)
  Sender: FDA-Public Use
  Company Number: US-PFIZER INC-2012066624

PATIENT
  Age: 63 Year
  Sex: Female
  Weight: 111.11 kg

DRUGS (40)
  1. LYRICA [Suspect]
     Indication: DIABETIC NEUROPATHY
     Dosage: 100 MG, DAILY
     Route: 048
     Dates: start: 201202
  2. LYRICA [Suspect]
     Indication: NEUROPATHY PERIPHERAL
     Dosage: 200 MG, 2X/DAY
     Route: 048
     Dates: start: 201203, end: 201203
  3. LYRICA [Suspect]
     Indication: HYPOAESTHESIA
     Dosage: 200 MG, 2X/DAY
     Route: 048
  4. GABAPENTIN [Suspect]
     Indication: NEUROPATHY PERIPHERAL
     Dosage: 600 MG, 3X/DAY
     Route: 048
     Dates: end: 201203
  5. GABAPENTIN [Suspect]
     Indication: HYPOAESTHESIA
     Dosage: 600 MG, 3X/DAY
     Route: 048
     Dates: start: 201203
  6. AMITRIPTYLINE [Suspect]
     Indication: PAIN
     Dosage: 100 MG, DAILY AT NIGHT
     Dates: start: 201203
  7. AMITRIPTYLINE [Suspect]
     Indication: NEUROPATHY PERIPHERAL
     Dosage: 100 MG, 1X/DAY
     Dates: start: 2012
  8. AMITRIPTYLINE [Suspect]
     Indication: SLEEP DISORDER
     Dosage: 50 MG, AS NEEDED (TAKE ONE AT NIGHT)
  9. PROCRIT [Suspect]
     Dosage: UNK
  10. PROCRIT [Suspect]
     Dosage: 40000 IU, AS NEEDED
  11. LOVENOX [Suspect]
     Dosage: UNK
     Dates: start: 2012
  12. LEVAQUIN [Suspect]
     Dosage: UNK
     Dates: start: 2012, end: 2012
  13. IRON [Suspect]
     Indication: IRON DEFICIENCY
     Dosage: UNK
     Route: 042
     Dates: start: 201203
  14. WARFARIN SODIUM [Concomitant]
     Dosage: UNK
     Route: 042
     Dates: start: 201203
  15. WARFARIN SODIUM [Concomitant]
     Dosage: 8 MG, 1X/DAY (AT NIGHT EACH DAY)
  16. METFORMIN [Concomitant]
     Indication: DIABETES MELLITUS
     Dosage: 1000 MG, 2X/DAY
  17. ALPRAZOLAM [Concomitant]
     Dosage: 1 MG, AS NEEDED
  18. ALLOPURINOL [Concomitant]
     Dosage: 200 MG, 2X/DAY
  19. ALLOPURINOL [Concomitant]
     Dosage: 200 MG, 1X/DAY (100MG TABLET, TWO TABLETS BY MOUTH ONCE DAILY)
     Route: 048
  20. ASPIRIN [Concomitant]
     Dosage: UNK
  21. PROPRANOLOL [Concomitant]
     Dosage: 225 MG, UNK
  22. HYDROCODONE [Concomitant]
     Indication: BACK PAIN
     Dosage: UNK, AS NEEDED
  23. RANITIDINE [Concomitant]
     Dosage: 300 MG, 1X/DAY
  24. TORSEMIDE [Concomitant]
     Dosage: 20 MG, 2X/DAY ( TAKE (1) TABLET IN MORNING AND (1) TABLET IN EVENING EACH DAY)
     Route: 048
  25. HYOSCYAMINE [Concomitant]
     Dosage: 0.125 MG, 2X/DAY
  26. CARDIZEM [Concomitant]
     Dosage: UNK
  27. KLOR-CON [Concomitant]
     Dosage: 20 MEQ, 2X/DAY
  28. BENGAY RUB [Concomitant]
     Dosage: UNK, AS NEEDED
  29. VITAMIN B-12 [Concomitant]
     Dosage: 1 DF, 1X/DAY (1 PILL EACH DAY)
  30. TYLENOL [Concomitant]
     Dosage: UNK, AS NEEDED
  31. TIGAN [Concomitant]
     Indication: NAUSEA
     Dosage: 300 MG, AS NEEDED (TAKE ONE CAPSULE TWICE DAILY AS NEEDED)
     Route: 048
  32. HYDROCODONEW/ ACETAMINOPHEN [Concomitant]
     Indication: PAIN
     Dosage: 1 DF, AS NEEDED (10-325 TAB)
  33. TRAJENTA [Concomitant]
     Indication: DIABETES MELLITUS
     Dosage: 5 MG, 1X/DAY (TAKE ONE EACH MORNING)
  34. LANSOPRAZOLE [Concomitant]
     Dosage: 30 MG, 1X/DAY
     Route: 048
  35. XANAX [Concomitant]
     Dosage: 1 MG, AS NEEDED (ONE TAB 3 TIMES A DAY AS NEEDED)
  36. PROPAFENONE [Concomitant]
     Dosage: 225 MG, 3X/DAY (TAKE 1 EVERY 8 HR)
     Route: 048
  37. PROPAFENONE [Concomitant]
     Dosage: 225 MG, EVERY 8 HOURS
  38. POTASSIUM CHLORIDE [Concomitant]
     Dosage: 20 MEQ, 2X/DAY (1 EVERY MORNING AND EVENING)
     Route: 048
  39. PRILOSEC [Concomitant]
     Dosage: UNK
  40. FUROSEMIDE [Concomitant]
     Dosage: 40 MG, 2X/DAY
     Route: 048

REACTIONS (38)
  - Cerebrovascular accident [Unknown]
  - Atrial fibrillation [Unknown]
  - Lung infection [Unknown]
  - Kidney infection [Unknown]
  - Circulatory collapse [Unknown]
  - Dehydration [Unknown]
  - Iron deficiency anaemia [Unknown]
  - Dyspnoea [Unknown]
  - Dysstasia [Unknown]
  - Pneumonia aspiration [Unknown]
  - Facial bones fracture [Unknown]
  - Pneumonia [Unknown]
  - Lower limb fracture [Unknown]
  - Lower limb fracture [Unknown]
  - Abscess [Unknown]
  - Phlebitis [Unknown]
  - Cardiac disorder [Unknown]
  - Heart rate increased [Unknown]
  - Neoplasm skin [Unknown]
  - Oesophageal disorder [Unknown]
  - Chronic obstructive pulmonary disease [Unknown]
  - Myelodysplastic syndrome [Unknown]
  - Asthenia [Unknown]
  - Infection [Unknown]
  - Fall [Unknown]
  - Injury [Unknown]
  - Limb crushing injury [Unknown]
  - Renal failure [Unknown]
  - Pain [Recovering/Resolving]
  - Sleep disorder [Recovering/Resolving]
  - Drug ineffective [Unknown]
  - Blood glucose decreased [Unknown]
  - Dizziness [Unknown]
  - Memory impairment [Unknown]
  - Injection site haemorrhage [Unknown]
  - Somnolence [Unknown]
  - Nausea [Unknown]
  - Feeling abnormal [Unknown]
